FAERS Safety Report 5272189-6 (Version None)
Quarter: 2007Q1

REPORT INFORMATION
  Report Type: 
  Country: None (occurrence: None)
  Receive Date: 20061214
  Receipt Date: 20061011
  Transmission Date: 20070707
  Serious: Yes (Other)
  Sender: FDA-Public Use
  Company Number: 2006082241

PATIENT
  Age: 49 Year
  Sex: Male
  Weight: 124.7392 kg

DRUGS (2)
  1. BEXTRA [Suspect]
     Indication: PAIN
     Dosage: 20 MG (20 MG, 1IN 1 D)
     Dates: start: 20031209
  2. BEXTRA [Suspect]
     Indication: PERIARTHRITIS
     Dosage: 20 MG (20 MG, 1IN 1 D)
     Dates: start: 20031209

REACTIONS (3)
  - ANXIETY [None]
  - EMOTIONAL DISORDER [None]
  - MYOCARDIAL INFARCTION [None]
